FAERS Safety Report 4519514-9 (Version None)
Quarter: 2004Q4

REPORT INFORMATION
  Report Type: 
  Country: None (occurrence: None)
  Receive Date: 20041101
  Receipt Date: 20040324
  Transmission Date: 20050328
  Serious: Yes (Other)
  Sender: FDA-Public Use
  Company Number: HQWYE106425MAR04

PATIENT
  Age: 43 Year
  Sex: Female
  Weight: 55.39 kg

DRUGS (7)
  1. PREMARIN [Suspect]
     Indication: OESTROGEN REPLACEMENT THERAPY
     Dosage: 0.625-1.25MG DAILY, ORAL
     Route: 048
     Dates: start: 19630101
  2. ZOLOFT [Concomitant]
  3. VITAMIN E [Concomitant]
  4. FISH (FISH OIL) [Concomitant]
  5. POTASSIUM (POTASSIUM) [Concomitant]
  6. GRAPE SEED (GRAPE SEED) [Concomitant]
  7. ASPIRIN [Concomitant]

REACTIONS (2)
  - DRUG EFFECT DECREASED [None]
  - MOOD ALTERED [None]
